FAERS Safety Report 4820769-1 (Version None)
Quarter: 2005Q4

REPORT INFORMATION
  Report Type: 
  Country: None (occurrence: None)
  Receive Date: 20051103
  Receipt Date: 20051021
  Transmission Date: 20060501
  Serious: Yes (Other)
  Sender: FDA-Public Use
  Company Number: HQWYE156121OCT05

PATIENT
  Age: 63 Year
  Sex: Female

DRUGS (5)
  1. PANTOLOC (PANTOPRAZOLE, TABLET, DELAYED RELEASE) [Suspect]
     Indication: DYSPEPSIA
     Dosage: 40 MG, 1X PER 1 DAY, ORAL
     Route: 048
  2. NEXIUM [Suspect]
     Indication: DYSPEPSIA
     Dosage: 20 MG 2X PER 1 DAY
  3. LIORESAL [Concomitant]
  4. MARINOL [Concomitant]
  5. ERCOQUIN (HYDROXYCHLORQUINE SULFATE) [Concomitant]

REACTIONS (1)
  - CUTANEOUS LUPUS ERYTHEMATOSUS [None]
